FAERS Safety Report 10902385 (Version 1)
Quarter: 2015Q1

REPORT INFORMATION
  Report Type: Spontaneous
  Country: US (occurrence: US)
  Receive Date: 20150310
  Receipt Date: 20150310
  Transmission Date: 20150721
  Serious: No
  Sender: FDA-Public Use
  Company Number: US-SHIRE-US201501993

PATIENT
  Age: 48 Year
  Sex: Male
  Weight: 105.5 kg

DRUGS (3)
  1. ASTEPRO [Concomitant]
     Active Substance: AZELASTINE HYDROCHLORIDE
     Indication: RHINITIS
     Dosage: 0.15 %, 2X/DAY:BID
     Route: 045
  2. VPRIV [Suspect]
     Active Substance: VELAGLUCERASE ALFA
     Indication: GAUCHER^S DISEASE
     Dosage: 6000 IU, 1X/2WKS
     Route: 041
     Dates: start: 20150302
  3. FLUTICASONE [Concomitant]
     Active Substance: FLUTICASONE\FLUTICASONE PROPIONATE
     Indication: RHINITIS
     Dosage: UNK (TWO SPRAYS), 1X/DAY:QD
     Route: 045

REACTIONS (4)
  - Epigastric discomfort [Not Recovered/Not Resolved]
  - Diarrhoea [Recovered/Resolved]
  - Headache [Recovered/Resolved]
  - Infusion related reaction [Not Recovered/Not Resolved]

NARRATIVE: CASE EVENT DATE: 20150302
